FAERS Safety Report 7514494-6 (Version None)
Quarter: 2011Q2

REPORT INFORMATION
  Report Type: 
  Country: None (occurrence: None)
  Receive Date: 20110601
  Receipt Date: 20101004
  Transmission Date: 20111010
  Serious: No
  Sender: FDA-Public Use
  Company Number: US-BAYER-201022264BCC

PATIENT
  Sex: Female
  Weight: 49.887 kg

DRUGS (12)
  1. MIDOL EXTENDED RELIEF CAPLETS [Suspect]
     Indication: BACK PAIN
  2. ASTELIN [Concomitant]
  3. MIDOL PM CAPLETS [Suspect]
     Indication: HEADACHE
  4. NEXIUM [Concomitant]
  5. MOTRIN [Concomitant]
     Dosage: UNK
  6. MIDOL EXTENDED RELIEF CAPLETS [Suspect]
     Indication: DYSMENORRHOEA
     Dosage: UNK
     Dates: start: 20100701
  7. MIDOL EXTENDED RELIEF CAPLETS [Suspect]
     Indication: HEADACHE
  8. FLONASE [Concomitant]
  9. TOPAMAX [Concomitant]
  10. MIDOL PM CAPLETS [Suspect]
     Indication: BACK PAIN
  11. MIDOL MENSTRUAL COMPLETE CAPLETS [Suspect]
     Indication: DYSMENORRHOEA
  12. MIDOL PM CAPLETS [Suspect]
     Indication: DYSMENORRHOEA
     Dosage: UNK
     Dates: start: 20100701

REACTIONS (5)
  - INSOMNIA [None]
  - MIDDLE INSOMNIA [None]
  - DYSMENORRHOEA [None]
  - BACK PAIN [None]
  - HEADACHE [None]
